FAERS Safety Report 9442081 (Version 2)
Quarter: 2014Q1

REPORT INFORMATION
  Report Type: Spontaneous
  Country: US (occurrence: US)
  Receive Date: 20130806
  Receipt Date: 20140121
  Transmission Date: 20141002
  Serious: Yes (Hospitalization)
  Sender: FDA-Public Use
  Company Number: US-B.I. PHARMACEUTICALS,INC./RIDGEFIELD-2012-BP-11006BP

PATIENT
  Sex: Female
  Weight: 86.18 kg

DRUGS (11)
  1. PRADAXA [Suspect]
     Dates: start: 20110615, end: 20110815
  2. ASPIRIN [Concomitant]
  3. VITAMIN D [Concomitant]
  4. CALCIUM [Concomitant]
  5. MULTIVITAMIN [Concomitant]
  6. LEVETHROXINE [Concomitant]
     Dates: start: 200709, end: 201108
  7. METOPROLOL [Concomitant]
     Dates: start: 200801, end: 201107
  8. TOVIAZ [Concomitant]
     Dates: start: 201012, end: 201110
  9. ESTRACE [Concomitant]
     Dates: start: 201102
  10. NYSTATIN [Concomitant]
     Dates: start: 201106, end: 201108
  11. TWYNSTA [Concomitant]
     Dates: start: 201009, end: 201107

REACTIONS (3)
  - Renal failure acute [Unknown]
  - Asthenia [Unknown]
  - Gastrointestinal haemorrhage [Unknown]
